FAERS Safety Report 5577549-1 (Version None)
Quarter: 2007Q4

REPORT INFORMATION
  Report Type: 
  Country: None (occurrence: None)
  Receive Date: 20071130
  Receipt Date: 20070921
  Transmission Date: 20080405
  Serious: No
  Sender: FDA-Public Use
  Company Number: US200709005172

PATIENT
  Age: 55 Year
  Sex: Female

DRUGS (8)
  1. BYETTA [Suspect]
     Indication: TYPE 2 DIABETES MELLITUS
     Dosage: 10 UG, SUBCUTANEOUS; 10 UG, SUBCUTANEOUS
     Route: 058
     Dates: start: 20070921, end: 20070921
  2. METFORMIN HCL [Concomitant]
  3. LISINOPRIL [Concomitant]
  4. PREMARIN (ESTROGENS CONJUGATED, MEDROGESTONE) [Concomitant]
  5. ATENOLOL [Concomitant]
  6. AMLODIPINE [Concomitant]
  7. SIMVASTATIN [Concomitant]
  8. LEVOXYL [Concomitant]

REACTIONS (1)
  - INCORRECT DOSE ADMINISTERED [None]
